FAERS Safety Report 7458706-6 (Version None)
Quarter: 2011Q2

REPORT INFORMATION
  Report Type: 
  Country: None (occurrence: None)
  Receive Date: 20110504
  Receipt Date: 20110420
  Transmission Date: 20111010
  Serious: Yes (Hospitalization)
  Sender: FDA-Public Use
  Company Number: US-JNJFOC-20110411923

PATIENT
  Sex: Male

DRUGS (2)
  1. ROGAINE UNSPECIFIED [Suspect]
     Indication: ALOPECIA
     Dosage: HALF A DOSE
     Route: 061
  2. ROGAINE UNSPECIFIED [Suspect]
     Route: 061

REACTIONS (3)
  - HEART RATE ABNORMAL [None]
  - CARDIAC DISORDER [None]
  - FATIGUE [None]
